FAERS Safety Report 5544506-0 (Version None)
Quarter: 2007Q4

REPORT INFORMATION
  Report Type: 
  Country: None (occurrence: None)
  Receive Date: 20071210
  Receipt Date: 20061206
  Transmission Date: 20080405
  Serious: No
  Sender: FDA-Public Use
  Company Number: US-AMGEN-KDL202764

PATIENT
  Sex: Female

DRUGS (2)
  1. ENBREL [Suspect]
     Indication: RHEUMATOID ARTHRITIS
     Route: 058
     Dates: start: 20061106
  2. METHOTREXATE [Concomitant]
     Route: 065
     Dates: start: 20040101

REACTIONS (4)
  - CHILLS [None]
  - DIARRHOEA [None]
  - HOT FLUSH [None]
  - NAUSEA [None]
